FAERS Safety Report 17911641 (Version 3)
Quarter: 2020Q3

REPORT INFORMATION
  Report Type: Spontaneous
  Country: US (occurrence: US)
  Receive Date: 20200618
  Receipt Date: 20200924
  Transmission Date: 20201103
  Serious: No
  Sender: FDA-Public Use
  Company Number: US-PFIZER INC-2020119104

PATIENT
  Age: 68 Year
  Sex: Female

DRUGS (3)
  1. LYRICA [Suspect]
     Active Substance: PREGABALIN
     Indication: SCIATICA
  2. LYRICA [Suspect]
     Active Substance: PREGABALIN
     Indication: LUMBAR RADICULOPATHY
     Dosage: 300 MG (2 TO 3 TIMES DAILY(BID(TWICE A DAY) TO TID(THRICE A DAY))
     Route: 048
  3. LYRICA [Suspect]
     Active Substance: PREGABALIN
     Indication: BACK PAIN

REACTIONS (2)
  - Prescribed overdose [Unknown]
  - Coronavirus infection [Unknown]
